FAERS Safety Report 7372421-9 (Version None)
Quarter: 2011Q1

REPORT INFORMATION
  Report Type: 
  Country: None (occurrence: None)
  Receive Date: 20110324
  Receipt Date: 20100427
  Transmission Date: 20110831
  Serious: Yes (Hospitalization)
  Sender: FDA-Public Use
  Company Number: PHHY2010DE90783

PATIENT
  Sex: Male

DRUGS (1)
  1. EXTAVIA [Suspect]
     Dosage: UNK
     Route: 058
     Dates: start: 20100421

REACTIONS (5)
  - FATIGUE [None]
  - BLADDER DISORDER [None]
  - GASTROINTESTINAL MOTILITY DISORDER [None]
  - CEREBROVASCULAR ACCIDENT [None]
  - PERIPHERAL COLDNESS [None]
